FAERS Safety Report 7630423-9 (Version None)
Quarter: 2011Q3

REPORT INFORMATION
  Report Type: 
  Country: None (occurrence: None)
  Receive Date: 20110722
  Receipt Date: 20110714
  Transmission Date: 20111222
  Serious: Yes (Death)
  Sender: FDA-Public Use
  Company Number: JP-GLAXOSMITHKLINE-B0712275A

PATIENT
  Sex: Male
  Weight: 50 kg

DRUGS (2)
  1. MUCODYNE [Concomitant]
     Indication: EMPHYSEMA
     Dosage: 1500MG PER DAY
     Route: 048
     Dates: start: 20100127, end: 20100202
  2. FLUTICASONE PROPIONATE/SALMETEROL [Suspect]
     Indication: EMPHYSEMA
     Dosage: 500MCG PER DAY
     Route: 055
     Dates: start: 20100127, end: 20100202

REACTIONS (3)
  - HAEMOPTYSIS [None]
  - DECREASED APPETITE [None]
  - RESPIRATORY FAILURE [None]
